FAERS Safety Report 6453925-X (Version None)
Quarter: 2009Q4

REPORT INFORMATION
  Report Type: 
  Country: None (occurrence: None)
  Receive Date: 20091124
  Receipt Date: 20091116
  Transmission Date: 20100525
  Serious: Yes (Hospitalization, Other)
  Sender: FDA-Public Use
  Company Number: US-BAYER-200823261NA

PATIENT
  Age: 29 Year
  Sex: Female
  Weight: 48 kg

DRUGS (9)
  1. BETASERON [Suspect]
     Indication: RELAPSING-REMITTING MULTIPLE SCLEROSIS
     Dosage: TOTAL DAILY DOSE: 8 MIU
     Route: 058
     Dates: start: 20000920, end: 20070901
  2. BETASERON [Suspect]
     Route: 058
     Dates: start: 20090817, end: 20091105
  3. BETASERON [Suspect]
     Route: 058
     Dates: end: 20080120
  4. BETASERON [Suspect]
     Dosage: TOTAL DAILY DOSE: 8 MIU
     Route: 058
     Dates: start: 20091113
  5. STEROIDS [Suspect]
     Indication: DRUG USE FOR UNKNOWN INDICATION
  6. CYMBALTA [Concomitant]
  7. HYDROCODONE [Concomitant]
  8. DIAZEPAM [Concomitant]
  9. AVONEX [Concomitant]

REACTIONS (10)
  - CHILLS [None]
  - COUGH [None]
  - DRUG HYPERSENSITIVITY [None]
  - FEELING ABNORMAL [None]
  - HYSTERECTOMY [None]
  - INTERVERTEBRAL DISC PROTRUSION [None]
  - PNEUMONIA BACTERIAL [None]
  - PNEUMONIA VIRAL [None]
  - PYREXIA [None]
  - TREMOR [None]
